FAERS Safety Report 16977100 (Version 2)
Quarter: 2019Q4

REPORT INFORMATION
  Report Type: Spontaneous
  Country: BR (occurrence: BR)
  Receive Date: 20191030
  Receipt Date: 20191108
  Transmission Date: 20200122
  Serious: Yes (Hospitalization)
  Sender: FDA-Public Use
  Company Number: BR-BRISTOL-MYERS SQUIBB COMPANY-BMS-2019-085145

PATIENT
  Age: 60 Year
  Sex: Male

DRUGS (1)
  1. OPDIVO [Suspect]
     Active Substance: NIVOLUMAB
     Indication: METASTATIC MALIGNANT MELANOMA
     Dosage: 222 MILLIGRAM
     Route: 065
     Dates: start: 201807

REACTIONS (4)
  - Skin discolouration [Unknown]
  - Influenza [Unknown]
  - Rhinorrhoea [Unknown]
  - Macule [Unknown]

NARRATIVE: CASE EVENT DATE: 20190819
